FAERS Safety Report 8426893-9 (Version None)
Quarter: 2012Q2

REPORT INFORMATION
  Report Type: 
  Country: None (occurrence: None)
  Receive Date: 20120611
  Receipt Date: 20120530
  Transmission Date: 20120825
  Serious: Yes (Hospitalization)
  Sender: FDA-Public Use
  Company Number: PT-PFIZER INC-2012131296

PATIENT
  Age: 9 Month
  Sex: Male

DRUGS (2)
  1. METHYLPREDNISOLONE SODIUM SUCCINATE [Suspect]
     Indication: GASTROINTESTINAL DISORDER
     Dosage: 2 MG/KG/DAY
     Route: 042
  2. METHYLPREDNISOLONE SODIUM SUCCINATE [Suspect]
     Dosage: 1.5 MG/KG/DAY
     Route: 042

REACTIONS (1)
  - PANNICULITIS [None]
